FAERS Safety Report 10149047 (Version 1)
Quarter: 2014Q2

REPORT INFORMATION
  Report Type: Spontaneous
  Country: US (occurrence: US)
  Receive Date: 20140502
  Receipt Date: 20140502
  Transmission Date: 20141212
  Serious: No
  Sender: FDA-Public Use
  Company Number: US-009507513-1404USA015138

PATIENT
  Age: 29 Year
  Sex: Female

DRUGS (1)
  1. NUVARING [Suspect]
     Dosage: UNK UNK, QM
     Route: 067
     Dates: start: 201204

REACTIONS (1)
  - Incorrect product storage [Unknown]
